FAERS Safety Report 5347934-1 (Version None)
Quarter: 2007Q2

REPORT INFORMATION
  Report Type: 
  Country: None (occurrence: None)
  Receive Date: 20070606
  Receipt Date: 20070531
  Transmission Date: 20071010
  Serious: Yes (Death, Life-Threatening)
  Sender: FDA-Public Use
  Company Number: B0470439A

PATIENT
  Age: 35 Year
  Sex: Male
  Weight: 68 kg

DRUGS (2)
  1. SEROXAT [Suspect]
     Indication: DEPRESSION
     Route: 065
  2. LITHIUM CARBONATE [Concomitant]

REACTIONS (7)
  - CIRCULATORY COLLAPSE [None]
  - DYSARTHRIA [None]
  - FALL [None]
  - FOAMING AT MOUTH [None]
  - OVERDOSE [None]
  - SOMNOLENCE [None]
  - SUICIDAL IDEATION [None]
